FAERS Safety Report 24738685 (Version 1)
Quarter: 2024Q4

REPORT INFORMATION
  Report Type: Spontaneous
  Country: US (occurrence: US)
  Receive Date: 20241216
  Receipt Date: 20241216
  Transmission Date: 20250114
  Serious: Yes (Hospitalization, Other)
  Sender: INCYTE
  Company Number: US-INCYTE CORPORATION-2024IN013246

PATIENT

DRUGS (1)
  1. JAKAFI [Suspect]
     Active Substance: RUXOLITINIB
     Indication: Acute myeloid leukaemia (in remission)
     Dosage: 10 MILLIGRAM, BID
     Route: 048

REACTIONS (2)
  - Acute myeloid leukaemia (in remission) [Unknown]
  - Off label use [Unknown]
